FAERS Safety Report 22157076 (Version 2)
Quarter: 2023Q2

REPORT INFORMATION
  Report Type: Report from Study
  Country: CA (occurrence: CA)
  Receive Date: 20230330
  Receipt Date: 20230405
  Transmission Date: 20230722
  Serious: Yes (Hospitalization, Other)
  Sender: FDA-Public Use
  Company Number: CA-INCYTE CORPORATION-2023IN002003

PATIENT

DRUGS (1)
  1. PEMIGATINIB [Suspect]
     Active Substance: PEMIGATINIB
     Indication: Cholangiocarcinoma
     Dosage: 13.5 MILLIGRAM, DIE FOR 14 DAYS, THEN 7 DAYS OFF THERAPY (IN CYCLES)
     Route: 048
     Dates: start: 20221018, end: 20230313

REACTIONS (8)
  - Cholangiocarcinoma [Unknown]
  - Nail bed disorder [Unknown]
  - Visual impairment [Unknown]
  - Stomatitis [Unknown]
  - Nail discolouration [Unknown]
  - Mouth ulceration [Unknown]
  - Onycholysis [Unknown]
  - Disease progression [Unknown]
